FAERS Safety Report 10086254 (Version 4)
Quarter: 2014Q2

REPORT INFORMATION
  Report Type: Spontaneous
  Country: US (occurrence: US)
  Receive Date: 20140418
  Receipt Date: 20140521
  Transmission Date: 20141212
  Serious: Yes (Life-Threatening, Hospitalization)
  Sender: FDA-Public Use
  Company Number: US-PFIZER INC-2014108076

PATIENT
  Age: 62 Year
  Sex: Male

DRUGS (5)
  1. AMIODARONE HCL [Suspect]
     Indication: ATRIAL FIBRILLATION
     Dosage: 200 MG, 2X/DAY
     Route: 065
  2. ASPIRIN [Concomitant]
     Dosage: 325 MG, DAILY
  3. FUROSEMIDE [Concomitant]
     Dosage: 40 MG, 2X/DAY
  4. LISINOPRIL [Concomitant]
     Dosage: 20 MG, DAILY
  5. METOPROLOL [Concomitant]
     Dosage: 50 MG, 2X/DAY

REACTIONS (2)
  - Myxoedema coma [Recovered/Resolved]
  - Hypothyroidism [Recovered/Resolved]
